FAERS Safety Report 21525926 (Version 1)
Quarter: 2022Q4

REPORT INFORMATION
  Report Type: Spontaneous
  Country: EG (occurrence: EG)
  Receive Date: 20221031
  Receipt Date: 20221031
  Transmission Date: 20230112
  Serious: Yes (Hospitalization, Other)
  Sender: FDA-Public Use
  Company Number: EG-NOVOPROD-972969

PATIENT
  Age: 61 Year
  Sex: Male
  Weight: 80 kg

DRUGS (2)
  1. NOVORAPID [Suspect]
     Active Substance: INSULIN ASPART
     Indication: Diabetes mellitus
     Dosage: 18 IU, QD (8U/DAY AND 10U/NIGHT)
     Route: 058
  2. TRESIBA [Suspect]
     Active Substance: INSULIN DEGLUDEC
     Indication: Diabetes mellitus
     Dosage: 25 IU

REACTIONS (2)
  - Varices oesophageal [Recovered/Resolved]
  - Blood glucose increased [Unknown]
